FAERS Safety Report 13338031 (Version 1)
Quarter: 2017Q1

REPORT INFORMATION
  Report Type: Spontaneous
  Country: US (occurrence: US)
  Receive Date: 20170315
  Receipt Date: 20170315
  Transmission Date: 20170428
  Serious: No
  Sender: FDA-Public Use
  Company Number: None

PATIENT
  Age: 65 Year
  Sex: Female

DRUGS (1)
  1. LEVEMIR [Suspect]
     Active Substance: INSULIN DETEMIR
     Indication: DIABETES MELLITUS
     Dosage: AT BEDTIME
     Route: 058

REACTIONS (4)
  - Pruritus [None]
  - Injection site inflammation [None]
  - Injection site erythema [None]
  - Contusion [None]

NARRATIVE: CASE EVENT DATE: 20170315
